FAERS Safety Report 6195573-5 (Version None)
Quarter: 2009Q2

REPORT INFORMATION
  Report Type: 
  Country: None (occurrence: None)
  Receive Date: 20090519
  Receipt Date: 20090515
  Transmission Date: 20091009
  Serious: Yes (Death, Other)
  Sender: FDA-Public Use
  Company Number: PHHY2009BR18974

PATIENT
  Sex: Male

DRUGS (1)
  1. EXELON [Suspect]
     Dosage: UNK
     Route: 062

REACTIONS (4)
  - DEATH [None]
  - DEMENTIA ALZHEIMER'S TYPE [None]
  - DIABETES MELLITUS [None]
  - PNEUMONIA [None]
